FAERS Safety Report 5321346-9 (Version None)
Quarter: 2007Q2

REPORT INFORMATION
  Report Type: 
  Country: None (occurrence: None)
  Receive Date: 20070510
  Receipt Date: 20070508
  Transmission Date: 20071010
  Serious: Yes (Other)
  Sender: FDA-Public Use
  Company Number: US-JNJFOC-20061006565

PATIENT

DRUGS (11)
  1. PEPCID AC [Suspect]
  2. PEPCID AC [Suspect]
     Indication: DRUG USE FOR UNKNOWN INDICATION
  3. NEXIUM [Interacting]
     Indication: GASTROOESOPHAGEAL REFLUX DISEASE
  4. TOPROL-XL [Interacting]
     Indication: DRUG USE FOR UNKNOWN INDICATION
  5. AMBIEN [Interacting]
     Indication: DRUG USE FOR UNKNOWN INDICATION
  6. ZOCOR [Interacting]
     Indication: DRUG USE FOR UNKNOWN INDICATION
  7. LEXAPRO [Interacting]
     Indication: DRUG USE FOR UNKNOWN INDICATION
  8. DYAZIDE [Interacting]
     Indication: DRUG USE FOR UNKNOWN INDICATION
  9. IRON [Interacting]
     Indication: DRUG USE FOR UNKNOWN INDICATION
  10. CALCIUM CHLORIDE [Interacting]
     Indication: DRUG USE FOR UNKNOWN INDICATION
  11. MULTI-VITAMIN [Interacting]
     Indication: DRUG USE FOR UNKNOWN INDICATION

REACTIONS (3)
  - DRUG INTERACTION [None]
  - EXPRESSIVE LANGUAGE DISORDER [None]
  - INSOMNIA [None]
